FAERS Safety Report 7707251-9 (Version None)
Quarter: 2011Q3

REPORT INFORMATION
  Report Type: 
  Country: None (occurrence: None)
  Receive Date: 20110824
  Receipt Date: 20110815
  Transmission Date: 20111222
  Serious: Yes (Disabling, Other)
  Sender: FDA-Public Use
  Company Number: PHHY2011BR74835

PATIENT
  Age: 86 Year
  Sex: Female

DRUGS (3)
  1. INDACATEROL [Suspect]
     Indication: CHRONIC OBSTRUCTIVE PULMONARY DISEASE
     Dosage: 150 UG, QD
     Dates: start: 20110419, end: 20110510
  2. OXYGEN [Concomitant]
     Dosage: UNK UKN, QD
  3. CICLESONIDE [Concomitant]

REACTIONS (4)
  - FATIGUE [None]
  - ADENOMA BENIGN [None]
  - SYNCOPE [None]
  - AMNESIA [None]
